FAERS Safety Report 6402601-8 (Version None)
Quarter: 2009Q4

REPORT INFORMATION
  Report Type: 
  Country: None (occurrence: None)
  Receive Date: 20091009
  Receipt Date: 20091001
  Transmission Date: 20100525
  Serious: Yes (Other)
  Sender: FDA-Public Use
  Company Number: 2009SP028516

PATIENT
  Age: 14 Year
  Sex: Female

DRUGS (4)
  1. AERIUS (DELORATADINE) (DESLORATADINE) [Suspect]
     Indication: URTICARIA
     Dates: start: 20090901
  2. BESITRAN [Concomitant]
  3. ORFIDAL [Concomitant]
  4. NOCTAMID [Concomitant]

REACTIONS (1)
  - INTENTIONAL SELF-INJURY [None]
